FAERS Safety Report 4607145-1 (Version None)
Quarter: 2005Q1

REPORT INFORMATION
  Report Type: 
  Country: None (occurrence: None)
  Receive Date: 20050309
  Receipt Date: 20050221
  Transmission Date: 20050727
  Serious: Yes (Other)
  Sender: FDA-Public Use
  Company Number: USA050291379

PATIENT
  Sex: Female

DRUGS (2)
  1. CYMBALTA [Suspect]
     Dosage: 60 MG DAY
     Dates: start: 20050201, end: 20050216
  2. TRAZODONE HCL [Concomitant]

REACTIONS (2)
  - CONTUSION [None]
  - HYPERSENSITIVITY [None]
